FAERS Safety Report 9761224 (Version 1)
Quarter: 2013Q4

REPORT INFORMATION
  Report Type: Spontaneous
  Country: IT (occurrence: IT)
  Receive Date: 20131216
  Receipt Date: 20131216
  Transmission Date: 20140711
  Serious: Yes (Other)
  Sender: FDA-Public Use
  Company Number: IT-PFIZER INC-2013360376

PATIENT
  Age: 29 Year
  Sex: Female

DRUGS (2)
  1. EPIRUBICIN HCL [Suspect]
     Indication: BREAST CANCER
     Dosage: 155 MG, CYCLIC
     Route: 042
     Dates: start: 20131014, end: 20131111
  2. ENDOXAN-BAXTER [Suspect]
     Indication: BREAST CANCER
     Dosage: 1032 MG, CYCLIC
     Route: 042
     Dates: start: 20131014, end: 20131111

REACTIONS (1)
  - Transaminases increased [Not Recovered/Not Resolved]
